FAERS Safety Report 20695312 (Version 1)
Quarter: 2022Q2

REPORT INFORMATION
  Report Type: Spontaneous
  Country: US (occurrence: US)
  Receive Date: 20220411
  Receipt Date: 20220411
  Transmission Date: 20220721
  Serious: Yes (Other)
  Sender: FDA-Public Use
  Company Number: US-PFIZER INC-202200490103

PATIENT
  Age: 72 Year
  Sex: Male

DRUGS (1)
  1. BEVACIZUMAB [Suspect]
     Active Substance: BEVACIZUMAB
     Indication: Macular degeneration
     Dosage: UNK, INTRAVITREAL INJECTION
     Route: 050

REACTIONS (3)
  - Off label use [Unknown]
  - Renal tubular necrosis [Unknown]
  - Off label use [Unknown]
